FAERS Safety Report 4842636-X (Version None)
Quarter: 2005Q4

REPORT INFORMATION
  Report Type: 
  Country: None (occurrence: None)
  Receive Date: 20051201
  Receipt Date: 20051129
  Transmission Date: 20060501
  Serious: Yes (Life-Threatening, Hospitalization)
  Sender: FDA-Public Use
  Company Number: NO-GLAXOSMITHKLINE-B0402283A

PATIENT
  Age: 54 Year
  Sex: Female

DRUGS (2)
  1. ZINACEF [Suspect]
     Indication: PROPHYLAXIS
     Dosage: 1.5G PER DAY
     Route: 042
     Dates: start: 20051103, end: 20051103
  2. FLAGYL [Suspect]
     Route: 048
     Dates: start: 20051103, end: 20051103

REACTIONS (4)
  - ANAPHYLACTIC REACTION [None]
  - BLOOD PRESSURE DECREASED [None]
  - ERYTHEMA [None]
  - GENERALISED OEDEMA [None]
